FAERS Safety Report 16206108 (Version 1)
Quarter: 2019Q2

REPORT INFORMATION
  Report Type: Report from Study
  Country: DE (occurrence: DE)
  Receive Date: 20190417
  Receipt Date: 20190417
  Transmission Date: 20190711
  Serious: Yes (Hospitalization)
  Sender: FDA-Public Use
  Company Number: DE-TEVA-2019-DE-1039380

PATIENT
  Age: 16 Year
  Sex: Female
  Weight: 47.5 kg

DRUGS (3)
  1. THIOTEPA. [Suspect]
     Active Substance: THIOTEPA
     Dosage: 460 MILLIGRAM DAILY;
     Route: 042
     Dates: start: 20190211, end: 20190211
  2. FLUDARABINE [Suspect]
     Active Substance: FLUDARABINE PHOSPHATE
     Dosage: 43 MILLIGRAM DAILY;
     Route: 042
     Dates: start: 20190206, end: 20190210
  3. BUSULFAN. [Suspect]
     Active Substance: BUSULFAN
     Dosage: 152 MILLIGRAM DAILY;
     Route: 042
     Dates: start: 20190206, end: 20190209

REACTIONS (1)
  - Graft versus host disease [Unknown]

NARRATIVE: CASE EVENT DATE: 20190410
